FAERS Safety Report 13831993 (Version 1)
Quarter: 2017Q3

REPORT INFORMATION
  Report Type: Spontaneous
  Country: US (occurrence: US)
  Receive Date: 20170803
  Receipt Date: 20170803
  Transmission Date: 20171127
  Serious: Yes (Other)
  Sender: FDA-Public Use
  Company Number: US-ROCHE-684985

PATIENT
  Age: 92 Year
  Sex: Female

DRUGS (2)
  1. FOSAMAX [Concomitant]
     Active Substance: ALENDRONATE SODIUM
     Route: 065
     Dates: start: 2004, end: 200507
  2. BONIVA [Suspect]
     Active Substance: IBANDRONATE SODIUM
     Indication: OSTEOPOROSIS
     Route: 065
     Dates: start: 200507, end: 201002

REACTIONS (1)
  - Osteonecrosis of jaw [Not Recovered/Not Resolved]

NARRATIVE: CASE EVENT DATE: 200912
